FAERS Safety Report 5888242-X (Version None)
Quarter: 2008Q3

REPORT INFORMATION
  Report Type: 
  Country: None (occurrence: None)
  Receive Date: 20080918
  Receipt Date: 20080915
  Transmission Date: 20090109
  Serious: Yes (Hospitalization)
  Sender: FDA-Public Use
  Company Number: FR-WYE-G02160408

PATIENT
  Age: 52 Year
  Sex: Male

DRUGS (1)
  1. RHINADVIL [Suspect]
     Indication: SINUSITIS
     Dosage: 4 TABLETS TOTAL DAILY
     Route: 048
     Dates: start: 20070901, end: 20070901

REACTIONS (1)
  - URINARY RETENTION [None]
